FAERS Safety Report 8401651-X (Version None)
Quarter: 2012Q2

REPORT INFORMATION
  Report Type: 
  Country: None (occurrence: None)
  Receive Date: 20120529
  Receipt Date: 20100708
  Transmission Date: 20120825
  Serious: Yes (Death, Other)
  Sender: FDA-Public Use
  Company Number: 008988

PATIENT
  Age: 94 Year
  Sex: Female

DRUGS (11)
  1. PLETAL [Suspect]
     Indication: PERIPHERAL ARTERIAL OCCLUSIVE DISEASE
     Dosage: 50 MG, QD, ORAL
     Route: 048
     Dates: start: 20091113, end: 20091220
  2. PLETAL [Suspect]
     Indication: PERIPHERAL ARTERIAL OCCLUSIVE DISEASE
     Dosage: 50 MG, QD, ORAL
     Route: 048
     Dates: start: 20091014, end: 20091112
  3. DIOVAN [Concomitant]
  4. NICHISTATE (TICLOPIDINE HYDROCHLORIDE) [Concomitant]
  5. AMLODIPINE [Concomitant]
  6. RABEPRAZOLE SODIUM [Concomitant]
  7. LERITE (ENALAPRIL MALEATE) [Concomitant]
  8. MAGNESIUM OXIDE (MAGNESIUM OXIDE) [Concomitant]
  9. FOSAMAX [Concomitant]
  10. ISOSORBIDE DINITRATE [Concomitant]
  11. THYRADIN (THYROID) [Concomitant]

REACTIONS (5)
  - ACUTE RESPIRATORY FAILURE [None]
  - BRADYCARDIA [None]
  - ARRHYTHMIA [None]
  - THYROID DISORDER [None]
  - CARDIO-RESPIRATORY ARREST [None]
